FAERS Safety Report 9905552 (Version 1)
Quarter: 2014Q1

REPORT INFORMATION
  Report Type: Spontaneous
  Country: JP (occurrence: JP)
  Receive Date: 20140218
  Receipt Date: 20140218
  Transmission Date: 20141002
  Serious: Yes (Hospitalization)
  Sender: FDA-Public Use
  Company Number: JP-GLAXOSMITHKLINE-B0955940A

PATIENT
  Age: 58 Year
  Sex: Female

DRUGS (1)
  1. VOTRIENT 200MG [Suspect]
     Indication: SOFT TISSUE CANCER
     Dosage: 400MG PER DAY
     Route: 048
     Dates: start: 20131122, end: 20140128

REACTIONS (4)
  - Pneumothorax [Recovering/Resolving]
  - Hepatic function abnormal [Recovering/Resolving]
  - Platelet count decreased [Recovering/Resolving]
  - Dyspnoea [Recovering/Resolving]
